FAERS Safety Report 17041347 (Version 2)
Quarter: 2019Q4

REPORT INFORMATION
  Report Type: Spontaneous
  Country: FR (occurrence: FR)
  Receive Date: 20191118
  Receipt Date: 20191121
  Transmission Date: 20200122
  Serious: Yes (Other)
  Sender: FDA-Public Use
  Company Number: FR-TAKEDA-2019TUS061531

PATIENT
  Age: 28 Year
  Sex: Female

DRUGS (2)
  1. BRINTELLIX [Suspect]
     Active Substance: VORTIOXETINE HYDROBROMIDE
     Indication: MAJOR DEPRESSION
     Dosage: 5 MILLIGRAM, QD
     Route: 065
     Dates: start: 201802
  2. BRINTELLIX [Suspect]
     Active Substance: VORTIOXETINE HYDROBROMIDE
     Dosage: 15 MILLIGRAM, QD
     Route: 065
     Dates: start: 201909, end: 201910

REACTIONS (6)
  - Nightmare [Unknown]
  - Poor quality sleep [Recovered/Resolved]
  - Hypnagogic hallucination [Unknown]
  - Drug ineffective [Unknown]
  - Hypnopompic hallucination [Unknown]
  - Daydreaming [Unknown]

NARRATIVE: CASE EVENT DATE: 2019
